FAERS Safety Report 21359965 (Version 2)
Quarter: 2022Q3

REPORT INFORMATION
  Report Type: Report from Study
  Country: US (occurrence: US)
  Receive Date: 20220921
  Receipt Date: 20220922
  Transmission Date: 20221027
  Serious: Yes (Death, Other)
  Sender: FDA-Public Use
  Company Number: US-SA-SAC20220920001036

PATIENT
  Age: 2 Year
  Sex: Female

DRUGS (1)
  1. ALGLUCOSIDASE ALFA [Suspect]
     Active Substance: ALGLUCOSIDASE ALFA
     Indication: Glycogen storage disease type II
     Dosage: 550 U, QW
     Route: 041
     Dates: start: 20210909, end: 20220914

REACTIONS (3)
  - Respiratory arrest [Fatal]
  - Respiratory failure [Fatal]
  - Product use issue [Unknown]

NARRATIVE: CASE EVENT DATE: 20210909
